FAERS Safety Report 13638193 (Version 1)
Quarter: 2017Q2

REPORT INFORMATION
  Report Type: Spontaneous
  Country: US (occurrence: US)
  Receive Date: 20170609
  Receipt Date: 20170609
  Transmission Date: 20170830
  Serious: Yes (Other)
  Sender: FDA-Public Use
  Company Number: US-PFIZER INC-2015448351

PATIENT
  Sex: Female

DRUGS (1)
  1. ESTRING [Suspect]
     Active Substance: ESTRADIOL
     Indication: VAGINAL DISORDER
     Dosage: UNK
     Dates: end: 20170111

REACTIONS (3)
  - Incorrect drug administration duration [Unknown]
  - Endometrial cancer [Unknown]
  - Endometriosis [Unknown]

NARRATIVE: CASE EVENT DATE: 20170111
